FAERS Safety Report 4645967-1 (Version None)
Quarter: 2005Q2

REPORT INFORMATION
  Report Type: 
  Country: None (occurrence: None)
  Receive Date: 20050425
  Receipt Date: 20050413
  Transmission Date: 20051028
  Serious: Yes (Death, Hospitalization)
  Sender: FDA-Public Use
  Company Number: RS005104-J

PATIENT
  Age: 42 Year
  Sex: Female
  Weight: 38 kg

DRUGS (11)
  1. RABEPRAZOLE SODIUM [Suspect]
     Indication: PROPHYLAXIS AGAINST GASTROINTESTINAL ULCER
     Dosage: 10 MG, 1 IN 1 D, ORAL
     Route: 048
     Dates: start: 20050311, end: 20050323
  2. WARFARIN SODIUM [Suspect]
     Indication: THROMBOSIS PROPHYLAXIS
     Dosage: 0.5 MG, 1 IN 1 D, ORAL
     Route: 048
     Dates: start: 20050311, end: 20050323
  3. NU-LOTAN (LOSARTAN POTASSIUM) [Concomitant]
  4. BONALON (ALENDRONATE SODIUM) [Concomitant]
  5. LEVOTHYROXINE SODIUM [Concomitant]
  6. PREDNISOLONE [Concomitant]
  7. BETAMETHASONE [Concomitant]
  8. HUSCODE (HUSCODE) [Concomitant]
  9. CEFZON (CEFDINIR) [Concomitant]
  10. DASEN (SERRAPEPTASE) [Concomitant]
  11. COLAC (BOSACODYL) [Concomitant]

REACTIONS (9)
  - ARTERIAL INJURY [None]
  - COMPLETED SUICIDE [None]
  - DEPRESSION [None]
  - ERYTHEMA [None]
  - HAEMORRHAGE [None]
  - OEDEMA [None]
  - PSYCHOTIC DISORDER [None]
  - RASH [None]
  - RASH ERYTHEMATOUS [None]
